FAERS Safety Report 8457335-5 (Version None)
Quarter: 2012Q2

REPORT INFORMATION
  Report Type: 
  Country: None (occurrence: None)
  Receive Date: 20120621
  Receipt Date: 20120606
  Transmission Date: 20120825
  Serious: No
  Sender: FDA-Public Use
  Company Number: US-ASTRAZENECA-2012SE38045

PATIENT

DRUGS (1)
  1. NEXIUM [Suspect]
     Route: 048

REACTIONS (5)
  - CARDIAC DISORDER [None]
  - GOUT [None]
  - DIABETES MELLITUS [None]
  - ANXIETY [None]
  - HYPERTENSION [None]
